FAERS Safety Report 8165085-8 (Version None)
Quarter: 2012Q1

REPORT INFORMATION
  Report Type: 
  Country: None (occurrence: None)
  Receive Date: 20120227
  Receipt Date: 20120213
  Transmission Date: 20120608
  Serious: Yes (Hospitalization)
  Sender: FDA-Public Use
  Company Number: BR-AMGEN-BRASP2012010272

PATIENT
  Age: 58 Year
  Sex: Female
  Weight: 98 kg

DRUGS (3)
  1. METICORTEN [Concomitant]
     Indication: ARTHRITIS
     Dosage: UNK
  2. BENICAR [Concomitant]
     Dosage: UNK
     Dates: start: 20110801
  3. ENBREL [Suspect]
     Indication: RHEUMATOID ARTHRITIS
     Dosage: 25 MG, 2X/WEEK
     Route: 058
     Dates: start: 20111201, end: 20120201

REACTIONS (1)
  - LUNG DISORDER [None]
